FAERS Safety Report 7521106-4 (Version None)
Quarter: 2011Q2

REPORT INFORMATION
  Report Type: 
  Country: None (occurrence: None)
  Receive Date: 20110603
  Receipt Date: 20101117
  Transmission Date: 20111010
  Serious: No
  Sender: FDA-Public Use
  Company Number: US-BAYER-2010-002347

PATIENT
  Age: 46 Year
  Sex: Male
  Weight: 158.73 kg

DRUGS (2)
  1. ULTRAVIST 150 [Suspect]
     Indication: HERNIA
     Dosage: 120 ML, ONCE
     Route: 042
     Dates: start: 20101117, end: 20101117
  2. LISINOPRIL [Concomitant]

REACTIONS (2)
  - URTICARIA [None]
  - PRURITUS [None]
